FAERS Safety Report 8443966-5 (Version None)
Quarter: 2012Q2

REPORT INFORMATION
  Report Type: 
  Country: None (occurrence: None)
  Receive Date: 20120611
  Receipt Date: 20120524
  Transmission Date: 20120825
  Serious: Yes (Other)
  Sender: FDA-Public Use
  Company Number: FK201201488

PATIENT
  Age: 11 Month
  Sex: Male

DRUGS (1)
  1. LIDOCAINE [Suspect]
     Indication: ANALGESIC THERAPY
     Dosage: 10.1 MG/KG, INTRAVENOUS BOLUS
     Route: 040

REACTIONS (1)
  - GRAND MAL CONVULSION [None]
